FAERS Safety Report 8425286-8 (Version None)
Quarter: 2012Q2

REPORT INFORMATION
  Report Type: 
  Country: None (occurrence: None)
  Receive Date: 20120605
  Receipt Date: 20120427
  Transmission Date: 20120825
  Serious: Yes (Other)
  Sender: FDA-Public Use
  Company Number: 2012000130

PATIENT
  Age: 68 Year
  Sex: Female

DRUGS (2)
  1. ACEON [Suspect]
     Indication: PRODUCT USED FOR UNKNOWN INDICATION
     Dates: start: 20090101
  2. HYDROCHLOROTHIAZIDE [Concomitant]

REACTIONS (2)
  - OROPHARYNGEAL PAIN [None]
  - PNEUMONIA [None]
